FAERS Safety Report 5504258-7 (Version None)
Quarter: 2007Q4

REPORT INFORMATION
  Report Type: 
  Country: None (occurrence: None)
  Receive Date: 20071101
  Receipt Date: 20071022
  Transmission Date: 20080405
  Serious: Yes (Death, Hospitalization)
  Sender: FDA-Public Use
  Company Number: FR-WYE-H00767907

PATIENT
  Sex: Female

DRUGS (17)
  1. INIPOMP [Suspect]
     Route: 048
     Dates: start: 20070705
  2. TRAMADOL HCL [Suspect]
     Indication: INJURY
     Route: 048
     Dates: start: 20070628, end: 20070713
  3. LASIX [Suspect]
     Route: 048
     Dates: start: 20070629
  4. TAVANIC [Suspect]
     Indication: RESPIRATORY DISORDER
     Route: 048
     Dates: start: 20070704, end: 20070713
  5. TAVANIC [Suspect]
     Route: 048
     Dates: start: 20070704
  6. ROCEPHIN [Suspect]
     Indication: RESPIRATORY DISORDER
     Route: 042
     Dates: start: 20070709
  7. DAFALGAN [Concomitant]
     Indication: PAIN
     Route: 048
     Dates: start: 20070628
  8. CACIT [Concomitant]
     Indication: LUMBAR VERTEBRAL FRACTURE
     Route: 048
     Dates: start: 20070628
  9. TANAKAN [Concomitant]
     Dosage: UNKNOWN
  10. CHONDROSULF [Concomitant]
     Indication: OSTEOARTHRITIS
     Dosage: UNKNOWN
  11. AMOXICILLIN + CLAVULANATE POTASSIUM [Concomitant]
     Indication: RESPIRATORY DISORDER
     Dosage: ^DF^
     Route: 048
     Dates: start: 20070630, end: 20070704
  12. AMOXICILLIN + CLAVULANATE POTASSIUM [Concomitant]
     Dosage: ^DF^
     Route: 048
     Dates: start: 20070715, end: 20070716
  13. CITALOPRAM HYDROBROMIDE [Concomitant]
     Route: 048
     Dates: start: 20070703
  14. PREDNISOLONE [Concomitant]
     Route: 048
     Dates: start: 20070713
  15. TERBUTALINE [Concomitant]
     Indication: RESPIRATORY DISORDER
     Dosage: ^DF^
     Dates: start: 20070630
  16. IPRATROPIUM BROMIDE [Concomitant]
     Indication: RESPIRATORY DISORDER
     Dosage: ^DF^
     Dates: start: 20070630
  17. KARDEGIC [Suspect]
     Indication: PROPHYLAXIS
     Route: 048
     Dates: start: 20070705

REACTIONS (1)
  - RENAL FAILURE ACUTE [None]
